FAERS Safety Report 9978512 (Version 1)
Quarter: 2014Q1

REPORT INFORMATION
  Report Type: Report from Study
  Country: US (occurrence: US)
  Receive Date: 20140306
  Receipt Date: 20140306
  Transmission Date: 20141002
  Serious: No
  Sender: FDA-Public Use
  Company Number: US-ABBVIE-13P-163-1173434-00

PATIENT
  Age: 48 Year
  Sex: Male

DRUGS (5)
  1. HUMIRA [Suspect]
     Indication: CROHN^S DISEASE
     Dosage: LOADING DOSE
     Dates: start: 20131122, end: 20131122
  2. HUMIRA [Suspect]
  3. MERCAPTOPURINE [Concomitant]
     Indication: CROHN^S DISEASE
  4. UCERIS [Concomitant]
     Indication: CROHN^S DISEASE
  5. LEXAPRO [Concomitant]
     Indication: CROHN^S DISEASE

REACTIONS (5)
  - Fatigue [Not Recovered/Not Resolved]
  - Hypersomnia [Not Recovered/Not Resolved]
  - Decreased appetite [Not Recovered/Not Resolved]
  - Hangover [Not Recovered/Not Resolved]
  - Nausea [Not Recovered/Not Resolved]
